FAERS Safety Report 25852469 (Version 1)
Quarter: 2025Q3

REPORT INFORMATION
  Report Type: Spontaneous
  Country: US (occurrence: None)
  Receive Date: 20250926
  Receipt Date: 20250926
  Transmission Date: 20251020
  Serious: Yes (Hospitalization)
  Sender: FDA-CTU
  Company Number: None

PATIENT
  Age: 58 Year
  Sex: Female
  Weight: 83.6 kg

DRUGS (4)
  1. DEXAMETHASONE [Suspect]
     Active Substance: DEXAMETHASONE
     Dates: end: 20240629
  2. LENALIDOMIDE [Suspect]
     Active Substance: LENALIDOMIDE
     Dates: end: 20240629
  3. CHLORTHALIDONE [Suspect]
     Active Substance: CHLORTHALIDONE
  4. LISINOPRIL [Suspect]
     Active Substance: LISINOPRIL

REACTIONS (5)
  - Dyspnoea exertional [None]
  - Palpitations [None]
  - Blood pressure decreased [None]
  - Dizziness [None]
  - Loss of personal independence in daily activities [None]

NARRATIVE: CASE EVENT DATE: 20240712
